FAERS Safety Report 5767898-6 (Version None)
Quarter: 2008Q2

REPORT INFORMATION
  Report Type: 
  Country: None (occurrence: None)
  Receive Date: 20080612
  Receipt Date: 20080606
  Transmission Date: 20081010
  Serious: Yes (Other)
  Sender: FDA-Public Use
  Company Number: US-ASTRAZENECA-2008UW11457

PATIENT
  Age: 56 Year
  Sex: Female
  Weight: 59 kg

DRUGS (9)
  1. SEROQUEL [Suspect]
     Route: 048
     Dates: start: 20040701
  2. TOPROL-XL [Suspect]
     Route: 048
  3. WELLBUTRIN [Concomitant]
  4. LIPITOR [Concomitant]
  5. SOMA [Concomitant]
  6. ULTRACET [Concomitant]
  7. VITAMIN D [Concomitant]
  8. I-HUPERZINE [Concomitant]
  9. PIRAZETAM [Concomitant]
     Indication: AMNESIA

REACTIONS (10)
  - ANXIETY [None]
  - ASTHENIA [None]
  - BLOOD CHOLESTEROL INCREASED [None]
  - BLOOD CORTISOL DECREASED [None]
  - BLOOD PRESSURE FLUCTUATION [None]
  - CONTUSION [None]
  - HEADACHE [None]
  - HEART VALVE INCOMPETENCE [None]
  - TINNITUS [None]
  - VERTIGO [None]
